FAERS Safety Report 19087083 (Version 2)
Quarter: 2021Q2

REPORT INFORMATION
  Report Type: Spontaneous
  Country: SI (occurrence: SI)
  Receive Date: 20210402
  Receipt Date: 20210416
  Transmission Date: 20210717
  Serious: Yes (Other)
  Sender: FDA-Public Use
  Company Number: SI-JNJFOC-20210358516

PATIENT
  Age: 75 Year
  Sex: Male

DRUGS (9)
  1. NALGESIN FORTE [Concomitant]
     Active Substance: NAPROXEN SODIUM
     Dosage: 550 MG, PRN
  2. ALOPURINOL [Concomitant]
     Active Substance: ALLOPURINOL
     Dosage: 100 MG, QD, MORNING
  3. ARCOXIA [Concomitant]
     Active Substance: ETORICOXIB
     Dosage: UNK UNK, PRN
  4. LACIPIL [Concomitant]
     Active Substance: LACIDIPINE
     Dosage: 4 MG, QD, MORNING
  5. NOLIPREL FORTE [Concomitant]
     Dosage: 4/1.25 MG, QD, MORNING
  6. RIVAROXABAN [Suspect]
     Active Substance: RIVAROXABAN
     Indication: ATRIAL FIBRILLATION
     Dosage: 20 MG, QD
     Route: 048
     Dates: start: 20200715
  7. RIVAROXABAN [Suspect]
     Active Substance: RIVAROXABAN
     Indication: CHRONIC KIDNEY DISEASE
     Dosage: 15 MG, QD, MORNING
     Route: 048
     Dates: start: 20201117
  8. DORETA [Concomitant]
     Active Substance: ACETAMINOPHEN\TRAMADOL HYDROCHLORIDE
     Dosage: 37.5/325 MG, PRN
  9. ACIPAN [Concomitant]
     Active Substance: PANTOPRAZOLE SODIUM
     Dosage: 20 MG, QD, MORNING

REACTIONS (1)
  - Renal injury [Unknown]
